FAERS Safety Report 20304621 (Version 1)
Quarter: 2022Q1

REPORT INFORMATION
  Report Type: Spontaneous
  Country: US (occurrence: None)
  Receive Date: 20220105
  Receipt Date: 20220105
  Transmission Date: 20220423
  Serious: Yes (Life-Threatening, Hospitalization, Disabling)
  Sender: FDA-Public Use
  Company Number: None

PATIENT
  Age: 63 Year
  Sex: Female
  Weight: 54 kg

DRUGS (1)
  1. INFLIXIMAB [Suspect]
     Active Substance: INFLIXIMAB
     Indication: Product used for unknown indication
     Dosage: OTHER FREQUENCY : EVERY 6 WEEKS;?
     Route: 041
     Dates: start: 20130326, end: 20201130

REACTIONS (26)
  - Disseminated tuberculosis [None]
  - Pulmonary tuberculosis [None]
  - Intestinal tuberculosis [None]
  - Peritoneal tuberculosis [None]
  - Tuberculosis liver [None]
  - Spleen tuberculosis [None]
  - Lymph node tuberculosis [None]
  - Mycobacterium tuberculosis complex test positive [None]
  - Drug resistance [None]
  - Bovine tuberculosis [None]
  - Mycobacterium tuberculosis complex test positive [None]
  - Abdominal pain [None]
  - Granuloma [None]
  - Mesenteric neoplasm [None]
  - Nodule [None]
  - Intestinal mass [None]
  - Pulmonary mass [None]
  - Vomiting [None]
  - Asthenia [None]
  - Weight decreased [None]
  - Arthropathy [None]
  - Condition aggravated [None]
  - Asthenia [None]
  - Abdominal mass [None]
  - Arthralgia [None]
  - Joint swelling [None]

NARRATIVE: CASE EVENT DATE: 20210305
